FAERS Safety Report 5487173-7 (Version None)
Quarter: 2007Q3

REPORT INFORMATION
  Report Type: 
  Country: None (occurrence: None)
  Receive Date: 20070925
  Receipt Date: 20070604
  Transmission Date: 20080115
  Serious: No
  Sender: FDA-Public Use
  Company Number: 2007US001304

PATIENT
  Age: 70 Year
  Sex: Female

DRUGS (6)
  1. VESICARE [Suspect]
     Indication: HYPERTONIC BLADDER
     Dosage: 10 MG, UID/QD, ORAL
     Route: 048
     Dates: start: 20061101
  2. FOSAMAX [Concomitant]
  3. EFFEXOR [Concomitant]
  4. VITAMINS [Concomitant]
  5. CALTRATE + D (VITAMIN D NOS, CALCIUM) [Concomitant]
  6. OXYCODONE HCL [Concomitant]

REACTIONS (4)
  - ALOPECIA [None]
  - NOCTURIA [None]
  - URINARY INCONTINENCE [None]
  - VISION BLURRED [None]
